FAERS Safety Report 20135120 (Version 1)
Quarter: 2021Q4

REPORT INFORMATION
  Report Type: Spontaneous
  Country: US (occurrence: US)
  Receive Date: 20211201
  Receipt Date: 20211201
  Transmission Date: 20220303
  Serious: No
  Sender: FDA-Public Use
  Company Number: US-SUNOVION-2021SUN004466

PATIENT
  Sex: Female

DRUGS (2)
  1. LATUDA [Suspect]
     Active Substance: LURASIDONE HYDROCHLORIDE
     Dosage: 20 MG
     Route: 048
  2. LATUDA [Suspect]
     Active Substance: LURASIDONE HYDROCHLORIDE
     Dosage: 30 MG (60MG TAB CUT IN HALF)
     Route: 048

REACTIONS (7)
  - Nightmare [Unknown]
  - Middle insomnia [Unknown]
  - Drug ineffective [Recovered/Resolved]
  - Memory impairment [Unknown]
  - Somnolence [Unknown]
  - Product administration error [Unknown]
  - Off label use [Unknown]
